FAERS Safety Report 7560184-3 (Version None)
Quarter: 2011Q2

REPORT INFORMATION
  Report Type: 
  Country: None (occurrence: None)
  Receive Date: 20110621
  Receipt Date: 20110603
  Transmission Date: 20111010
  Serious: Yes (Other)
  Sender: FDA-Public Use
  Company Number: A0931938A

PATIENT
  Sex: Female

DRUGS (5)
  1. PRENATAL VITAMINS [Concomitant]
     Route: 064
  2. PAXIL CR [Suspect]
     Indication: DEPRESSION
     Route: 064
     Dates: start: 20050131, end: 20070401
  3. ZONEGRAN [Concomitant]
     Route: 064
  4. LAMICTAL [Concomitant]
     Route: 064
     Dates: start: 20050701
  5. DEPAKOTE [Concomitant]
     Route: 064

REACTIONS (3)
  - DRUG EXPOSURE DURING PREGNANCY [None]
  - RESPIRATORY FAILURE [None]
  - DRUG WITHDRAWAL SYNDROME NEONATAL [None]
